FAERS Safety Report 19997384 (Version 5)
Quarter: 2022Q3

REPORT INFORMATION
  Report Type: Report from Study
  Country: SE (occurrence: SE)
  Receive Date: 20211025
  Receipt Date: 20220705
  Transmission Date: 20221027
  Serious: Yes (Hospitalization)
  Sender: FDA-Public Use
  Company Number: SE-ABBVIE-21K-150-3730866-00

PATIENT
  Age: 59 Year
  Sex: Male

DRUGS (5)
  1. CARBIDOPA\LEVODOPA [Suspect]
     Active Substance: CARBIDOPA\LEVODOPA
     Indication: Parkinson^s disease
     Dosage: THERAPY DURATION: REMAINS AT 16H
     Route: 050
     Dates: start: 20150223
  2. CARBIDOPA\LEVODOPA [Suspect]
     Active Substance: CARBIDOPA\LEVODOPA
     Dosage: CD: MD: 5 ML, CD: 3.2 ML/H, ED: 1.2 ML.
     Route: 050
     Dates: start: 20210113, end: 2021
  3. CARBIDOPA\LEVODOPA [Suspect]
     Active Substance: CARBIDOPA\LEVODOPA
     Dosage: CURRENT DOSAGE: CONTINUOUS DOSE DAY: 3.0 ML/H, EXTRA DOSE: 0.2 ML.
     Route: 050
     Dates: start: 20210916, end: 2021
  4. CARBIDOPA\LEVODOPA [Suspect]
     Active Substance: CARBIDOPA\LEVODOPA
     Dosage: EXTRA DOSE INCREASED FROM 0.2 ML TO 1.0ML.
     Route: 050
     Dates: start: 2021
  5. CARBIDOPA\LEVODOPA [Suspect]
     Active Substance: CARBIDOPA\LEVODOPA
     Dosage: CONTINUOUS DOSE 2.7ML/H. EXTRA DOSES CAN BE GIVEN WITH 1 H INTERVALS
     Route: 050
     Dates: start: 20220630

REACTIONS (10)
  - Embedded device [Not Recovered/Not Resolved]
  - Drug ineffective [Not Recovered/Not Resolved]
  - Parkinson^s disease [Not Recovered/Not Resolved]
  - Infection [Unknown]
  - Off label use [Unknown]
  - Device dislocation [Recovered/Resolved]
  - Device occlusion [Not Recovered/Not Resolved]
  - Abdominal pain upper [Unknown]
  - Hyperkinesia [Not Recovered/Not Resolved]
  - Device operational issue [Unknown]

NARRATIVE: CASE EVENT DATE: 20210101
